FAERS Safety Report 6156280-8 (Version None)
Quarter: 2009Q2

REPORT INFORMATION
  Report Type: 
  Country: None (occurrence: None)
  Receive Date: 20090415
  Receipt Date: 20090402
  Transmission Date: 20091009
  Serious: Yes (Hospitalization)
  Sender: FDA-Public Use
  Company Number: US-SANOFI-SYNTHELABO-F03200900026

PATIENT
  Age: 52 Year
  Sex: Male
  Weight: 87 kg

DRUGS (8)
  1. DOCUSATE SODIUM [Concomitant]
     Indication: DRUG USE FOR UNKNOWN INDICATION
     Dosage: UNK
     Route: 065
     Dates: start: 20080611, end: 20080611
  2. LIPITOR [Concomitant]
     Indication: DRUG USE FOR UNKNOWN INDICATION
     Dosage: UNK
     Route: 065
     Dates: start: 20080611, end: 20080612
  3. VERSED [Concomitant]
     Indication: DRUG USE FOR UNKNOWN INDICATION
     Route: 065
     Dates: start: 20080611, end: 20080611
  4. HEPARIN [Concomitant]
     Indication: DRUG USE FOR UNKNOWN INDICATION
     Dosage: UNK
     Route: 065
  5. ASPIRIN [Concomitant]
     Indication: DRUG USE FOR UNKNOWN INDICATION
     Dosage: UNK
     Route: 065
  6. CANGRELOR VS PLACEBO (CODE NOT BROKEN) [Suspect]
     Indication: PERCUTANEOUS CORONARY INTERVENTION
     Dosage: 6.5ML IV BOLUS AT 15:26, FOLLOWED BY 104ML INFUSION FROM 15:26 TO 17:26
     Route: 042
     Dates: start: 20080611, end: 20080611
  7. ANGIOMAX [Concomitant]
     Indication: DRUG USE FOR UNKNOWN INDICATION
     Route: 065
     Dates: start: 20080611, end: 20080611
  8. CLOPIDOGREL [Suspect]
     Indication: PERCUTANEOUS CORONARY INTERVENTION
     Dosage: 4  CAPSULES PRE-PROCEDURE AND 4 CAPSULES POST-PROCEDURE
     Route: 048
     Dates: start: 20080611, end: 20080611

REACTIONS (1)
  - HYPERTENSIVE EMERGENCY [None]
